FAERS Safety Report 6569484-7 (Version None)
Quarter: 2010Q1

REPORT INFORMATION
  Report Type: 
  Country: None (occurrence: None)
  Receive Date: 20100204
  Receipt Date: 20100125
  Transmission Date: 20100710
  Serious: Yes (Other)
  Sender: FDA-Public Use
  Company Number: JP-PFIZER INC-2010010666

PATIENT
  Age: 70 Year
  Sex: Female

DRUGS (6)
  1. NORVASC [Suspect]
     Dosage: 5 MG, 1X/DAY
     Route: 048
     Dates: start: 20070401
  2. PRAVASTATIN SODIUM [Concomitant]
     Route: 048
  3. LAFUTIDINE [Concomitant]
     Route: 048
  4. TROXSIN [Concomitant]
     Route: 048
  5. LOXONIN [Concomitant]
  6. THYRADIN S [Concomitant]
     Route: 048

REACTIONS (1)
  - ELECTROCARDIOGRAM QT PROLONGED [None]
